FAERS Safety Report 9170781 (Version 1)
Quarter: 2013Q1

REPORT INFORMATION
  Report Type: Spontaneous
  Country: US (occurrence: US)
  Receive Date: 20130319
  Receipt Date: 20130319
  Transmission Date: 20140127
  Serious: No
  Sender: FDA-Public Use
  Company Number: US-PFIZER INC-2013089006

PATIENT
  Age: 53 Year
  Sex: Female
  Weight: 70.75 kg

DRUGS (5)
  1. LYRICA [Suspect]
     Indication: FIBROMYALGIA
     Dosage: 150 MG, 2X/DAY
     Route: 048
     Dates: start: 2003, end: 201301
  2. PROZAC [Concomitant]
     Indication: DEPRESSION
     Dosage: 80 MG, 2X/DAY
  3. MAXALT-MLT [Concomitant]
     Indication: MIGRAINE
     Dosage: UNK
  4. BUSPAR [Concomitant]
     Indication: ANXIETY
     Dosage: 30 MG, 2X/DAY
  5. MAGNESIUM [Concomitant]
     Indication: FIBROMYALGIA
     Dosage: UNK

REACTIONS (1)
  - Pain [Not Recovered/Not Resolved]
